FAERS Safety Report 10262272 (Version 1)
Quarter: 2014Q2

REPORT INFORMATION
  Report Type: Report from Study
  Country: IN (occurrence: IN)
  Receive Date: 20140626
  Receipt Date: 20140626
  Transmission Date: 20141212
  Serious: Yes (Other)
  Sender: FDA-Public Use
  Company Number: IN-BAXTER-2014BAX033515

PATIENT
  Sex: Male

DRUGS (5)
  1. ISOFLURANE USP (AERRANE) 100ML, 250ML GLASS BOTTLES - INHALATION ANAES [Suspect]
     Indication: GENERAL ANAESTHESIA
     Route: 065
  2. SODIUM CHLORIDE 0.9% INJECTION IP [Suspect]
     Indication: GENERAL ANAESTHESIA
     Route: 042
  3. PROPOFOL [Suspect]
     Indication: GENERAL ANAESTHESIA
     Dosage: 2-3 MG/KG
     Route: 065
  4. REMIFENTANIL [Suspect]
     Indication: GENERAL ANAESTHESIA
     Route: 065
  5. CEFOTAXIME [Suspect]
     Indication: GENERAL ANAESTHESIA
     Route: 065

REACTIONS (2)
  - Haemoglobin decreased [Unknown]
  - Pyrexia [Recovered/Resolved]
